FAERS Safety Report 24856971 (Version 1)
Quarter: 2025Q1

REPORT INFORMATION
  Report Type: Report from Study
  Country: US (occurrence: US)
  Receive Date: 20250117
  Receipt Date: 20250117
  Transmission Date: 20250409
  Serious: Yes (Other)
  Sender: GILEAD
  Company Number: US-GILEAD-2025-0699854

PATIENT
  Age: 47 Year
  Sex: Male

DRUGS (1)
  1. EMTRICITABINE\TENOFOVIR [Suspect]
     Active Substance: EMTRICITABINE\TENOFOVIR
     Indication: HIV infection
     Route: 048

REACTIONS (4)
  - Renal failure [Unknown]
  - Blood pressure abnormal [Unknown]
  - Migraine [Unknown]
  - Glomerular filtration rate decreased [Unknown]
